FAERS Safety Report 7705900-2 (Version None)
Quarter: 2011Q3

REPORT INFORMATION
  Report Type: 
  Country: None (occurrence: None)
  Receive Date: 20110824
  Receipt Date: 20110812
  Transmission Date: 20111222
  Serious: Yes (Hospitalization)
  Sender: FDA-Public Use
  Company Number: US-ELI_LILLY_AND_COMPANY-US201108004962

PATIENT
  Sex: Female

DRUGS (8)
  1. FORTEO [Suspect]
     Indication: OSTEOPOROSIS
     Dosage: 20 UG, QD
     Dates: start: 20110501
  2. METOPROLOL [Concomitant]
     Dosage: 25 MG, BID
  3. AMLODIPINE [Concomitant]
     Dosage: 10 MG, UNK
  4. CITALOPRAM HYDROBROMIDE [Concomitant]
     Dosage: 40 MG, QD
  5. IBUPROFEN [Concomitant]
     Dosage: 600 MG, OTHER
  6. FAMOTIDINE [Concomitant]
     Dosage: 20 MG, QD
  7. HYDROCODONE BITARTRATE [Concomitant]
     Dosage: 7.5 MG, UNK
  8. LEVOTHYROXINE SODIUM [Concomitant]
     Dosage: 0.05 MG, QD

REACTIONS (2)
  - BLOOD GLUCOSE INCREASED [None]
  - SPINAL FUSION SURGERY [None]
